FAERS Safety Report 4424501-5 (Version None)
Quarter: 2004Q3

REPORT INFORMATION
  Report Type: 
  Country: None (occurrence: None)
  Receive Date: 20040812
  Receipt Date: 20040415
  Transmission Date: 20050211
  Serious: Yes (Other)
  Sender: FDA-Public Use
  Company Number: JP-ROCHE-364529

PATIENT
  Age: 58 Year
  Sex: Female

DRUGS (11)
  1. XELODA [Suspect]
     Indication: BREAST CANCER
     Route: 048
     Dates: start: 20031115, end: 20040511
  2. MEDROXYPROGESTERONE ACETATE [Concomitant]
     Indication: BREAST CANCER
     Route: 048
     Dates: start: 19990815, end: 20040515
  3. AROMASIN [Concomitant]
     Indication: BREAST CANCER METASTATIC
     Route: 048
     Dates: start: 20040415, end: 20040515
  4. OXYCONTIN [Concomitant]
     Indication: PAIN
     Dosage: DOSAGE 2 TABLETS DAILY
     Route: 048
     Dates: start: 20031115, end: 20040315
  5. MORPHINE SULFATE [Concomitant]
     Indication: PAIN
     Route: 048
     Dates: start: 20031115, end: 20040515
  6. LOXONIN [Concomitant]
     Indication: PAIN
     Dosage: 3 TABLETS DAILY
     Route: 048
     Dates: start: 20031115, end: 20040515
  7. LANDSEN [Concomitant]
     Indication: PAIN
     Dosage: 1 TABLET DAILY
     Route: 048
     Dates: start: 20031115, end: 20040515
  8. DEPAS [Concomitant]
     Indication: INSOMNIA
     Route: 048
     Dates: start: 20030615, end: 20040515
  9. SERENACE [Concomitant]
     Indication: INSOMNIA
     Dosage: 1 TABLET DAILY
     Route: 048
     Dates: start: 20031215, end: 20040515
  10. HALCION [Concomitant]
     Indication: INSOMNIA
     Route: 048
     Dates: start: 20030715, end: 20040515
  11. TRYPTANOL [Concomitant]
     Indication: DRUG USE FOR UNKNOWN INDICATION
     Dates: start: 20031215, end: 20040515

REACTIONS (2)
  - C-REACTIVE PROTEIN INCREASED [None]
  - HYPERAMMONAEMIA [None]
